FAERS Safety Report 14639036 (Version 1)
Quarter: 2018Q1

REPORT INFORMATION
  Report Type: Spontaneous
  Country: FR (occurrence: FR)
  Receive Date: 20180315
  Receipt Date: 20180315
  Transmission Date: 20180509
  Serious: Yes (Other)
  Sender: FDA-Public Use
  Company Number: FR-MERCK KGAA-2043765

PATIENT
  Age: 56 Year
  Sex: Female

DRUGS (1)
  1. NOVOTHYROX [Suspect]
     Active Substance: LEVOTHYROXINE SODIUM
     Indication: PRODUCT USED FOR UNKNOWN INDICATION
     Dates: start: 201702, end: 201709

REACTIONS (14)
  - Asthenia [None]
  - Anxiety [None]
  - Headache [None]
  - Dizziness [None]
  - Loss of personal independence in daily activities [None]
  - Blood thyroid stimulating hormone increased [Recovered/Resolved]
  - Myalgia [Not Recovered/Not Resolved]
  - Respiratory distress [None]
  - Fatigue [Not Recovered/Not Resolved]
  - Irritability [None]
  - Cardiac disorder [Not Recovered/Not Resolved]
  - Respiratory disorder [Not Recovered/Not Resolved]
  - Arthralgia [Not Recovered/Not Resolved]
  - Anger [None]

NARRATIVE: CASE EVENT DATE: 20171110
